FAERS Safety Report 9989535 (Version 1)
Quarter: 2014Q1

REPORT INFORMATION
  Report Type: Spontaneous
  Country: US (occurrence: None)
  Receive Date: 20140123
  Receipt Date: 20140123
  Transmission Date: 20141002
  Serious: Yes (Hospitalization)
  Sender: FDA-Public Use
  Company Number: UTC-038797

PATIENT
  Age: 52 Year
  Sex: Female
  Weight: 52.3 kg

DRUGS (3)
  1. REMODULIN [Suspect]
     Indication: COR PULMONALE CHRONIC
     Dosage: 86.4 UG/KG  (0.06 UG/KG, 1 IN 1 MIN ), SUBCUTANEOUS
     Route: 058
     Dates: start: 20110315
  2. TRACLEER(BOSENTAN) [Concomitant]
  3. REVATIO (SILDENAFIL CITRATE) [Concomitant]

REACTIONS (1)
  - Dyspnoea [None]
